FAERS Safety Report 7985140-2 (Version None)
Quarter: 2011Q4

REPORT INFORMATION
  Report Type: 
  Country: None (occurrence: None)
  Receive Date: 20111216
  Receipt Date: 20111206
  Transmission Date: 20120403
  Serious: Yes (Hospitalization)
  Sender: FDA-Public Use
  Company Number: PHHO2011NL020503

PATIENT
  Sex: Female
  Weight: 61 kg

DRUGS (2)
  1. SANDIMMUNE [Suspect]
     Indication: GRAFT VERSUS HOST DISEASE
     Dosage: 400 MG, UNK
     Route: 048
     Dates: start: 20111112, end: 20111204
  2. MYCOPHENOLIC ACID [Suspect]
     Indication: GRAFT VERSUS HOST DISEASE
     Dosage: 1980 MG, UNK
     Route: 048
     Dates: start: 20111115, end: 20111204

REACTIONS (1)
  - FEBRILE NEUTROPENIA [None]
